FAERS Safety Report 4842955-7 (Version None)
Quarter: 2005Q4

REPORT INFORMATION
  Report Type: 
  Country: None (occurrence: None)
  Receive Date: 20051201
  Receipt Date: 20051128
  Transmission Date: 20060501
  Serious: Yes (Death, Life-Threatening)
  Sender: FDA-Public Use
  Company Number: ES-SANOFI-SYNTHELABO-F01200502557

PATIENT
  Sex: Male
  Weight: 64 kg

DRUGS (9)
  1. CLOPIDOGREL BISULFATE [Suspect]
     Indication: ACUTE CORONARY SYNDROME
     Dosage: UNK
     Dates: start: 20051115, end: 20051117
  2. ATROVENT [Concomitant]
     Dates: start: 20051113
  3. AUGMENTIN [Concomitant]
  4. AAS [Concomitant]
     Dates: start: 20051113, end: 20051117
  5. SEGURIL [Concomitant]
     Dates: start: 20051113
  6. CAPTOPRIL [Concomitant]
     Dates: start: 20051113
  7. ACOVIL [Concomitant]
     Dates: start: 20051114
  8. LEXATIN [Concomitant]
     Dates: start: 20051113
  9. HEPARIN [Concomitant]
     Dates: start: 20051116, end: 20051117

REACTIONS (2)
  - CARDIOVASCULAR DISORDER [None]
  - HAEMORRHAGIC STROKE [None]
